FAERS Safety Report 4353451-8 (Version None)
Quarter: 2004Q2

REPORT INFORMATION
  Report Type: 
  Country: None (occurrence: None)
  Receive Date: 20040430
  Receipt Date: 20040420
  Transmission Date: 20050107
  Serious: Yes (Other)
  Sender: FDA-Public Use
  Company Number: US-JNJFOC-20040404657

PATIENT

DRUGS (1)
  1. REMICADE [Suspect]
     Dosage: INTRAVENOUS
     Route: 042
     Dates: start: 20040301

REACTIONS (4)
  - HYPOTENSION [None]
  - HYPOXIA [None]
  - PNEUMONIA [None]
  - STREPTOCOCCAL SEPSIS [None]
